FAERS Safety Report 21113518 (Version 3)
Quarter: 2022Q3

REPORT INFORMATION
  Report Type: Report from Study
  Country: US (occurrence: US)
  Receive Date: 20220721
  Receipt Date: 20220728
  Transmission Date: 20221027
  Serious: Yes (Death, Life-Threatening, Other)
  Sender: FDA-Public Use
  Company Number: US-PHARMING-PHAUS2022000465

PATIENT

DRUGS (1)
  1. RUCONEST [Suspect]
     Active Substance: HUMAN C1-ESTERASE INHIBITOR
     Indication: Maternal exposure during pregnancy
     Route: 064

REACTIONS (3)
  - Premature baby [Fatal]
  - Pulmonary hypoplasia [Unknown]
  - Malnutrition [Unknown]

NARRATIVE: CASE EVENT DATE: 20220716
